FAERS Safety Report 23340129 (Version 3)
Quarter: 2024Q4

REPORT INFORMATION
  Report Type: Report from Study
  Country: US (occurrence: US)
  Receive Date: 20231227
  Receipt Date: 20241001
  Transmission Date: 20250115
  Serious: Yes (Other)
  Sender: ABBVIE
  Company Number: US-ABBVIE-5556492

PATIENT
  Age: 53 Year
  Sex: Female

DRUGS (1)
  1. RINVOQ [Suspect]
     Active Substance: UPADACITINIB
     Indication: Rheumatoid arthritis
     Route: 048
     Dates: start: 20201230

REACTIONS (8)
  - Hip surgery [Not Recovered/Not Resolved]
  - Post procedural complication [Unknown]
  - Monoplegia [Recovering/Resolving]
  - Pain [Unknown]
  - Peroneal nerve palsy [Unknown]
  - Fall [Unknown]
  - Brain fog [Unknown]
  - Joint injury [Recovering/Resolving]

NARRATIVE: CASE EVENT DATE: 20231101
